FAERS Safety Report 21953095 (Version 6)
Quarter: 2023Q2

REPORT INFORMATION
  Report Type: Report from Study
  Country: US (occurrence: US)
  Receive Date: 20230204
  Receipt Date: 20230526
  Transmission Date: 20230722
  Serious: No
  Sender: FDA-Public Use
  Company Number: US-002147023-NVSC2023US020193

PATIENT
  Age: 29 Year
  Sex: Female

DRUGS (2)
  1. KESIMPTA [Suspect]
     Active Substance: OFATUMUMAB
     Indication: Product used for unknown indication
     Dosage: UNK
     Route: 065
     Dates: start: 20230117
  2. KESIMPTA [Suspect]
     Active Substance: OFATUMUMAB
     Dosage: UNK
     Route: 065
     Dates: start: 20230314

REACTIONS (10)
  - Pain in extremity [Unknown]
  - Paraesthesia [Unknown]
  - Tremor [Unknown]
  - Hypoaesthesia [Unknown]
  - Muscle spasms [Unknown]
  - Muscle twitching [Unknown]
  - Dysuria [Unknown]
  - Dyschezia [Unknown]
  - Crying [Unknown]
  - Fatigue [Unknown]

NARRATIVE: CASE EVENT DATE: 20230208
